FAERS Safety Report 7339826-3 (Version None)
Quarter: 2011Q1

REPORT INFORMATION
  Report Type: 
  Country: None (occurrence: None)
  Receive Date: 20110304
  Receipt Date: 20110304
  Transmission Date: 20110831
  Serious: No
  Sender: FDA-Public Use
  Company Number: None

PATIENT
  Age: 34 Month
  Sex: Male
  Weight: 11.3399 kg

DRUGS (2)
  1. 120 ML BROVEX PEB LIQ DM 120 MI MCR/A FB:DEA-CRC [Suspect]
     Indication: COUGH
     Dosage: 3 ML 4-6 HOURS
     Dates: start: 20091124, end: 20091127
  2. 240 ML BROVEX PEB LIQ DM 240 MI MCR/A FB:DEA-CRC [Suspect]
     Indication: COUGH
     Dosage: 1-2 TESAPOONS 4-6 HOURS
     Dates: start: 20091124, end: 20091127

REACTIONS (1)
  - CONVULSION [None]
